FAERS Safety Report 10290124 (Version 1)
Quarter: 2014Q3

REPORT INFORMATION
  Report Type: Spontaneous
  Country: US (occurrence: US)
  Receive Date: 20140710
  Receipt Date: 20140710
  Transmission Date: 20150326
  Serious: No
  Sender: FDA-Public Use
  Company Number: US-PFIZER INC-2014190872

PATIENT
  Age: 61 Year
  Sex: Female
  Weight: 90.7 kg

DRUGS (2)
  1. SYNTHROID [Concomitant]
     Active Substance: LEVOTHYROXINE SODIUM
     Indication: THYROID DISORDER
     Dosage: 137 UG, UNK
  2. NEURONTIN [Suspect]
     Active Substance: GABAPENTIN
     Indication: CONVULSION
     Dosage: UNK
     Dates: start: 2011

REACTIONS (3)
  - Confusional state [Unknown]
  - Drug intolerance [Unknown]
  - Middle insomnia [Unknown]
